FAERS Safety Report 8859518 (Version 27)
Quarter: 2021Q1

REPORT INFORMATION
  Report Type: Other
  Country: CA (occurrence: CA)
  Receive Date: 20121024
  Receipt Date: 20210201
  Transmission Date: 20210420
  Serious: Yes (Other)
  Sender: FDA-Public Use
  Company Number: CA-ROCHE-1131671

PATIENT
  Age: 63 Year
  Sex: Male
  Weight: 88 kg

DRUGS (16)
  1. ACTEMRA [Suspect]
     Active Substance: TOCILIZUMAB
     Indication: RHEUMATOID ARTHRITIS
     Route: 042
     Dates: start: 20120320, end: 20150528
  2. TYLENOL ARTHRITIS PAIN [Concomitant]
     Active Substance: ACETAMINOPHEN
  3. ACTEMRA [Suspect]
     Active Substance: TOCILIZUMAB
     Dosage: DOSE REDUCED FROM 8MG/KG TO 6 MG/KG ON UNSPECIFIED DATE DUE TO HIGH LIVER ENZYME
     Route: 042
  4. ACTEMRA [Suspect]
     Active Substance: TOCILIZUMAB
     Route: 042
     Dates: start: 20150106, end: 20150528
  5. ACTEMRA [Suspect]
     Active Substance: TOCILIZUMAB
     Route: 042
     Dates: start: 20141014
  6. ACTEMRA [Suspect]
     Active Substance: TOCILIZUMAB
     Indication: RHEUMATOID ARTHRITIS
     Dosage: SUSPENDED
     Route: 058
     Dates: start: 20160126, end: 201801
  7. METHADONE [Concomitant]
     Active Substance: METHADONE HYDROCHLORIDE
  8. ACTEMRA [Suspect]
     Active Substance: TOCILIZUMAB
     Route: 042
     Dates: start: 20130205
  9. LASIX [Concomitant]
     Active Substance: FUROSEMIDE
     Dates: end: 201208
  10. PANTOLOC [Concomitant]
     Active Substance: PANTOPRAZOLE SODIUM
  11. ACTEMRA [Suspect]
     Active Substance: TOCILIZUMAB
     Route: 042
     Dates: start: 20130625
  12. ACTEMRA [Suspect]
     Active Substance: TOCILIZUMAB
     Route: 042
     Dates: start: 20141110
  13. VITAMIN C [Concomitant]
     Active Substance: ASCORBIC ACID
  14. ACTEMRA [Suspect]
     Active Substance: TOCILIZUMAB
     Route: 042
     Dates: start: 20140123
  15. DILAUDID [Concomitant]
     Active Substance: HYDROMORPHONE HYDROCHLORIDE
  16. GARLIC. [Concomitant]
     Active Substance: GARLIC

REACTIONS (23)
  - Drug ineffective [Unknown]
  - Gait disturbance [Not Recovered/Not Resolved]
  - Joint swelling [Recovered/Resolved]
  - Body temperature decreased [Unknown]
  - Post procedural infection [Not Recovered/Not Resolved]
  - Blood pressure increased [Recovering/Resolving]
  - Device breakage [Unknown]
  - Peripheral swelling [Not Recovered/Not Resolved]
  - Red blood cell sedimentation rate decreased [Recovered/Resolved]
  - Weight increased [Not Recovered/Not Resolved]
  - Joint instability [Unknown]
  - Cough [Not Recovered/Not Resolved]
  - Arthritis infective [Unknown]
  - Arthralgia [Recovered/Resolved]
  - Joint range of motion decreased [Not Recovered/Not Resolved]
  - Weight decreased [Unknown]
  - Infusion related reaction [Unknown]
  - Nasopharyngitis [Unknown]
  - Arthropathy [Unknown]
  - Blood cholesterol increased [Recovered/Resolved]
  - Therapeutic product effect decreased [Unknown]
  - Hepatic enzyme increased [Recovered/Resolved]
  - Rheumatoid arthritis [Unknown]

NARRATIVE: CASE EVENT DATE: 20121016
